FAERS Safety Report 7870994-0 (Version None)
Quarter: 2011Q4

REPORT INFORMATION
  Report Type: 
  Country: None (occurrence: None)
  Receive Date: 20111027
  Receipt Date: 20111018
  Transmission Date: 20120403
  Serious: Yes (Life-Threatening)
  Sender: FDA-Public Use
  Company Number: 2011MA015376

PATIENT
  Age: 67 Year
  Sex: Female

DRUGS (4)
  1. LIPITOR [Concomitant]
  2. TERBINAFINE HYDROCHLORIDE [Suspect]
     Dosage: 250 MG; PO
     Route: 048
     Dates: start: 20110628, end: 20110813
  3. ALVEDON [Concomitant]
  4. LOSARTAN POTASSIUM [Suspect]
     Indication: ESSENTIAL HYPERTENSION
     Dosage: 50 MG;QD;PO
     Route: 048
     Dates: start: 20100401

REACTIONS (1)
  - BLOOD PRESSURE INCREASED [None]
